FAERS Safety Report 5479810-8 (Version None)
Quarter: 2007Q4

REPORT INFORMATION
  Report Type: 
  Country: None (occurrence: None)
  Receive Date: 20071008
  Receipt Date: 20070927
  Transmission Date: 20080405
  Serious: Yes (Hospitalization)
  Sender: FDA-Public Use
  Company Number: US-SHR-US-2007-030981

PATIENT
  Age: 52 Year
  Sex: Female

DRUGS (9)
  1. BETASERON [Suspect]
     Route: 058
     Dates: start: 20050318, end: 20060128
  2. BETASERON [Suspect]
     Dosage: 8 MIU, EVERY 2D
     Route: 058
     Dates: start: 20060227
  3. TOPAMAX [Concomitant]
  4. OPANA ER [Concomitant]
  5. BACLOFEN [Concomitant]
  6. LOMOTIL [Concomitant]
  7. PHENERGAN HCL [Concomitant]
  8. SYNTHROID [Concomitant]
  9. MS CONTIN [Concomitant]
     Dates: start: 20070101, end: 20070901

REACTIONS (11)
  - BLOOD POTASSIUM DECREASED [None]
  - DEHYDRATION [None]
  - DIARRHOEA [None]
  - DRUG WITHDRAWAL SYNDROME [None]
  - EXPIRED DRUG ADMINISTERED [None]
  - GASTRIC HAEMORRHAGE [None]
  - GASTRITIS [None]
  - HEADACHE [None]
  - HIATUS HERNIA [None]
  - MULTIPLE SCLEROSIS [None]
  - THYROID FUNCTION TEST ABNORMAL [None]
